FAERS Safety Report 6059107-8 (Version None)
Quarter: 2009Q1

REPORT INFORMATION
  Report Type: 
  Country: None (occurrence: None)
  Receive Date: 20090130
  Receipt Date: 20090123
  Transmission Date: 20090719
  Serious: Yes (Other)
  Sender: FDA-Public Use
  Company Number: US-AVENTIS-200515076US

PATIENT
  Sex: Male
  Weight: 91 kg

DRUGS (11)
  1. LANTUS [Suspect]
     Route: 058
     Dates: start: 20020101
  2. LANTUS [Suspect]
     Dosage: DOSE: 25 IN AM AND 25-28 UNITS IN PM
     Route: 058
  3. LANTUS [Suspect]
     Route: 058
  4. LANTUS [Suspect]
     Route: 058
  5. APIDRA [Suspect]
     Dosage: DOSE: SLIDING SCALE WITH EACH MEAL
     Route: 051
     Dates: start: 20040101
  6. CARDIZEM CD [Concomitant]
  7. DIOVANE [Concomitant]
  8. ASPIRIN [Concomitant]
  9. PLETAL [Concomitant]
  10. HUMALOG [Concomitant]
  11. NORVASC [Concomitant]
     Dosage: DOSE: 5 MG DAILY

REACTIONS (8)
  - BLOOD GLUCOSE INCREASED [None]
  - BLOOD PRESSURE INCREASED [None]
  - OCULAR HYPERAEMIA [None]
  - RETINAL DETACHMENT [None]
  - RETINAL HAEMORRHAGE [None]
  - SCAR [None]
  - VISION BLURRED [None]
  - VITREOUS HAEMORRHAGE [None]
